FAERS Safety Report 17973279 (Version 4)
Quarter: 2020Q3

REPORT INFORMATION
  Report Type: Spontaneous
  Country: JP (occurrence: JP)
  Receive Date: 20200702
  Receipt Date: 20200818
  Transmission Date: 20201103
  Serious: Yes (Other)
  Sender: FDA-Public Use
  Company Number: JP-PFIZER INC-2020252518

PATIENT
  Age: 43 Year
  Sex: Female

DRUGS (3)
  1. PACLITAXEL. [Suspect]
     Active Substance: PACLITAXEL
     Dosage: UNK
  2. CARBOPLATIN. [Suspect]
     Active Substance: CARBOPLATIN
     Dosage: UNK
  3. PEGFILGRASTIM [Suspect]
     Active Substance: PEGFILGRASTIM
     Indication: LEUKOPENIA
     Dosage: UNK

REACTIONS (1)
  - Aortitis [Recovered/Resolved]
